FAERS Safety Report 7735195-5 (Version None)
Quarter: 2011Q3

REPORT INFORMATION
  Report Type: 
  Country: None (occurrence: None)
  Receive Date: 20110907
  Receipt Date: 20110905
  Transmission Date: 20111222
  Serious: Yes (Other)
  Sender: FDA-Public Use
  Company Number: JP-PFIZER INC-2011140092

PATIENT
  Age: 71 Year
  Sex: Female
  Weight: 55 kg

DRUGS (4)
  1. ARTZ [Suspect]
     Indication: PAIN
     Dosage: 25 MG, DAILY
     Route: 014
     Dates: start: 20110621, end: 20110621
  2. MUCOSTA [Concomitant]
     Indication: PROPHYLAXIS
     Dosage: 100 MG, 3X/DAY
     Dates: start: 20110621, end: 20110621
  3. KETOPROFEN [Concomitant]
     Indication: PAIN
     Dosage: 20 MG, 2X/DAY
     Route: 062
     Dates: start: 20110621, end: 20110621
  4. CELECOXIB [Suspect]
     Indication: OSTEOARTHRITIS
     Dosage: 100 MG, DAILY
     Route: 048
     Dates: start: 20110621, end: 20110621

REACTIONS (2)
  - DRUG ERUPTION [None]
  - SKIN ULCER [None]
